FAERS Safety Report 8814123 (Version 1)
Quarter: 2012Q4

REPORT INFORMATION
  Report Type: Spontaneous
  Country: US (occurrence: None)
  Receive Date: 20120926
  Receipt Date: 20120926
  Transmission Date: 20130627
  Serious: Yes (Other)
  Sender: FDA-Public Use
  Company Number: None

PATIENT
  Sex: Female

DRUGS (1)
  1. NP THYROID 30 [Suspect]
     Dates: start: 20120401, end: 20120915

REACTIONS (5)
  - Hot flush [None]
  - Anxiety [None]
  - Constipation [None]
  - Thyroid function test abnormal [None]
  - Product substitution issue [None]
